FAERS Safety Report 17005842 (Version 1)
Quarter: 2019Q4

REPORT INFORMATION
  Report Type: Spontaneous
  Country: US (occurrence: US)
  Receive Date: 20191106
  Receipt Date: 20191106
  Transmission Date: 20200122
  Serious: Yes (Life-Threatening, Hospitalization)
  Sender: FDA-Public Use
  Company Number: None

PATIENT
  Age: 54 Year
  Sex: Female
  Weight: 78.75 kg

DRUGS (1)
  1. AZITHROMYCIN 250 MG TABLET (6-COUNT, 5-DAY SUPPLY) [Suspect]
     Active Substance: AZITHROMYCIN
     Indication: BRONCHITIS
     Dosage: ?          QUANTITY:6 TABLET(S);?
     Route: 048

REACTIONS (1)
  - Colitis [None]

NARRATIVE: CASE EVENT DATE: 20191101
